FAERS Safety Report 7327192-9 (Version None)
Quarter: 2011Q1

REPORT INFORMATION
  Report Type: 
  Country: None (occurrence: None)
  Receive Date: 20110302
  Receipt Date: 20110222
  Transmission Date: 20110831
  Serious: Yes (Death)
  Sender: FDA-Public Use
  Company Number: CA-PFIZER INC-2011043366

PATIENT
  Age: 50 Year
  Sex: Male

DRUGS (9)
  1. ENBREL [Suspect]
     Indication: PSORIASIS
     Dosage: 50 MG, 2 TIMES/WK
     Route: 058
     Dates: start: 20061108
  2. TEMAZEPAM [Suspect]
  3. CITALOPRAM [Suspect]
  4. AMITRIPTYLINE [Suspect]
  5. ETHANOL [Suspect]
  6. OXAZEPAM [Suspect]
  7. ALPRAZOLAM [Suspect]
     Dosage: UNK
  8. OXYCODONE [Suspect]
  9. NORTRIPTYLINE [Suspect]

REACTIONS (1)
  - TOXICITY TO VARIOUS AGENTS [None]
